FAERS Safety Report 7031671-1 (Version None)
Quarter: 2010Q4

REPORT INFORMATION
  Report Type: 
  Country: None (occurrence: None)
  Receive Date: 20101001
  Receipt Date: 20100920
  Transmission Date: 20110411
  Serious: Yes (Other)
  Sender: FDA-Public Use
  Company Number: 018245

PATIENT
  Sex: Female
  Weight: 70.3 kg

DRUGS (9)
  1. LACOSAMIDE [Suspect]
     Indication: CONVULSION
     Dosage: SEE IMAGE, ORAL
     Route: 048
     Dates: start: 20100701, end: 20100727
  2. LACOSAMIDE [Suspect]
     Indication: CONVULSION
     Dosage: SEE IMAGE, ORAL
     Route: 048
     Dates: start: 20100728, end: 20100802
  3. LACOSAMIDE [Suspect]
     Indication: CONVULSION
     Dosage: SEE IMAGE, ORAL
     Route: 048
     Dates: start: 20100803, end: 20100813
  4. LACOSAMIDE [Suspect]
     Indication: CONVULSION
     Dosage: SEE IMAGE, ORAL
     Route: 048
     Dates: start: 20100814
  5. KLONOPIN [Concomitant]
  6. FORTEO [Concomitant]
  7. CALCIUM [Concomitant]
  8. VITAMIN D [Concomitant]
  9. MULTI-VITAMIN [Concomitant]

REACTIONS (11)
  - ANAEMIA [None]
  - ASTHENIA [None]
  - FATIGUE [None]
  - FLANK PAIN [None]
  - HYPERSOMNIA [None]
  - MYDRIASIS [None]
  - NAUSEA [None]
  - OCULAR HYPERAEMIA [None]
  - OSTEOCALCIN INCREASED [None]
  - RASH [None]
  - WHITE BLOOD CELL COUNT DECREASED [None]
